FAERS Safety Report 5078255-2 (Version None)
Quarter: 2006Q3

REPORT INFORMATION
  Report Type: 
  Country: None (occurrence: None)
  Receive Date: 20060811
  Receipt Date: 20060801
  Transmission Date: 20061208
  Serious: Yes (Hospitalization)
  Sender: FDA-Public Use
  Company Number: 2006UW15415

PATIENT
  Age: 79 Year
  Sex: Male

DRUGS (2)
  1. TOPROL-XL [Suspect]
     Route: 048
  2. PLAVIX [Concomitant]

REACTIONS (2)
  - HAEMORRHAGE [None]
  - VOMITING [None]
